FAERS Safety Report 8518280-X (Version None)
Quarter: 2012Q3

REPORT INFORMATION
  Report Type: 
  Country: None (occurrence: None)
  Receive Date: 20120718
  Receipt Date: 20111221
  Transmission Date: 20120928
  Serious: No
  Sender: FDA-Public Use
  Company Number: US-BRISTOL-MYERS SQUIBB COMPANY-16311912

PATIENT
  Age: 87 Year
  Sex: Female
  Weight: 82 kg

DRUGS (2)
  1. COUMADIN [Suspect]
     Indication: HEART RATE IRREGULAR
     Dosage: 1 DF: 2MG ON MON,WED,FRI 4MG PO OTHER DAYS OF WEEK
     Route: 048
  2. PREVACID [Concomitant]

REACTIONS (4)
  - DYSPEPSIA [None]
  - ERUCTATION [None]
  - ABDOMINAL DISCOMFORT [None]
  - INTERNATIONAL NORMALISED RATIO INCREASED [None]
